FAERS Safety Report 10717843 (Version 7)
Quarter: 2015Q2

REPORT INFORMATION
  Report Type: Spontaneous
  Country: JP (occurrence: JP)
  Receive Date: 20150116
  Receipt Date: 20150423
  Transmission Date: 20150821
  Serious: Yes (Disabling, Other)
  Sender: FDA-Public Use
  Company Number: JP-ASTRAZENECA-2014SE97432

PATIENT
  Age: 14457 Day
  Sex: Male
  Weight: 52 kg

DRUGS (46)
  1. ZYPREXA [Suspect]
     Active Substance: OLANZAPINE
     Indication: BIPOLAR DISORDER
     Route: 048
     Dates: start: 20070809, end: 20091013
  2. AMOXAN [Suspect]
     Active Substance: AMOXAPINE
     Indication: BIPOLAR DISORDER
     Dosage: 100 MG DAILY, ADMINISTRATION FREQUENCY: TWICE TO THRICE DAILY
     Route: 048
     Dates: start: 20071102, end: 20071130
  3. TRYPTANOL [Suspect]
     Active Substance: AMITRIPTYLINE
     Indication: BIPOLAR DISORDER
     Route: 048
     Dates: start: 20070921, end: 20071221
  4. TOLEDOMIN [Suspect]
     Active Substance: MILNACIPRAN HYDROCHLORIDE
     Indication: BIPOLAR DISORDER
     Route: 048
     Dates: start: 20081212, end: 20100416
  5. GRAMALIL [Concomitant]
     Active Substance: TIAPRIDE HYDROCHLORIDE
     Route: 048
     Dates: start: 20100604, end: 20101012
  6. ZYPREXA [Suspect]
     Active Substance: OLANZAPINE
     Indication: BIPOLAR DISORDER
     Route: 048
     Dates: start: 20091014, end: 20091225
  7. TOLEDOMIN [Suspect]
     Active Substance: MILNACIPRAN HYDROCHLORIDE
     Indication: BIPOLAR DISORDER
     Route: 048
     Dates: start: 20081003, end: 20081106
  8. BENZALIN [Concomitant]
     Active Substance: NITRAZEPAM
     Route: 048
     Dates: start: 20080111, end: 20110317
  9. DEPAKENE [Concomitant]
     Active Substance: VALPROIC ACID
     Route: 048
     Dates: start: 20081212, end: 20100601
  10. SEROQUEL [Suspect]
     Active Substance: QUETIAPINE FUMARATE
     Indication: BIPOLAR DISORDER
     Route: 048
     Dates: start: 20100507, end: 20100531
  11. ZYPREXA [Suspect]
     Active Substance: OLANZAPINE
     Indication: BIPOLAR DISORDER
     Route: 048
     Dates: start: 20070803, end: 20070808
  12. LIMAS [Suspect]
     Active Substance: LITHIUM CARBONATE
     Indication: BIPOLAR DISORDER
     Route: 048
     Dates: start: 20081107, end: 20081211
  13. LIMAS [Suspect]
     Active Substance: LITHIUM CARBONATE
     Indication: BIPOLAR DISORDER
     Route: 048
     Dates: start: 20081212, end: 20100219
  14. AMOXAN [Suspect]
     Active Substance: AMOXAPINE
     Indication: BIPOLAR DISORDER
     Dosage: 150 MG DAILY, ADMINISTRATION FREQUENCY: TWICE TO THRICE DAILY
     Route: 048
     Dates: start: 20070803, end: 20070920
  15. ATARAX-P [Concomitant]
     Active Substance: HYDROXYZINE HYDROCHLORIDE
     Route: 048
     Dates: start: 20070809, end: 20080110
  16. RIVOTRIL [Concomitant]
     Active Substance: CLONAZEPAM
     Route: 048
     Dates: start: 20090731
  17. LEVITRA [Concomitant]
     Active Substance: VARDENAFIL HYDROCHLORIDE TRIHYDRATE
     Route: 048
     Dates: start: 20100416
  18. SEROQUEL [Suspect]
     Active Substance: QUETIAPINE FUMARATE
     Indication: BIPOLAR DISORDER
     Route: 048
     Dates: start: 20100601, end: 20100608
  19. LIMAS [Suspect]
     Active Substance: LITHIUM CARBONATE
     Indication: BIPOLAR DISORDER
     Route: 048
     Dates: start: 20070803, end: 20081106
  20. TETRAMIDE [Suspect]
     Active Substance: MIANSERIN
     Indication: BIPOLAR DISORDER
     Route: 048
     Dates: start: 20091014, end: 20091211
  21. LANDSEN [Concomitant]
     Active Substance: CLONAZEPAM
     Route: 048
     Dates: start: 20100319, end: 20100506
  22. REMERON [Suspect]
     Active Substance: MIRTAZAPINE
     Indication: BIPOLAR DISORDER
     Route: 048
     Dates: start: 20100105, end: 20100304
  23. AMOXAN [Suspect]
     Active Substance: AMOXAPINE
     Indication: BIPOLAR DISORDER
     Dosage: 200 MG DAILY, ADMINISTRATION FREQUENCY: TWICE TO THRICE DAILY
     Route: 048
     Dates: start: 20070921, end: 20071101
  24. TRYPTANOL [Suspect]
     Active Substance: AMITRIPTYLINE
     Indication: BIPOLAR DISORDER
     Dosage: 75 MG, ADMINISTRATION FREQUENCY: TWICE TO THRICE DAILY
     Route: 048
  25. SEDIEL [Concomitant]
     Active Substance: TANDOSPIRONE
     Route: 048
     Dates: start: 20071005, end: 20081211
  26. SEPAZON [Concomitant]
     Active Substance: CLOXAZOLAM
     Route: 048
     Dates: start: 20081107, end: 20090730
  27. SEROQUEL [Suspect]
     Active Substance: QUETIAPINE FUMARATE
     Indication: BIPOLAR DISORDER
     Route: 048
     Dates: start: 20100305, end: 20100506
  28. TETRAMIDE [Suspect]
     Active Substance: MIANSERIN
     Indication: BIPOLAR DISORDER
     Route: 048
     Dates: start: 20071221, end: 20091013
  29. TOLEDOMIN [Suspect]
     Active Substance: MILNACIPRAN HYDROCHLORIDE
     Indication: BIPOLAR DISORDER
     Route: 048
     Dates: start: 20071130, end: 20081002
  30. ALESION [Concomitant]
     Active Substance: EPINASTINE HYDROCHLORIDE
     Route: 048
     Dates: start: 20080215, end: 20081106
  31. QUAZEPAM. [Concomitant]
     Active Substance: QUAZEPAM
     Route: 048
     Dates: start: 20100105, end: 20100506
  32. REMERON [Suspect]
     Active Substance: MIRTAZAPINE
     Indication: BIPOLAR DISORDER
     Route: 048
     Dates: start: 20091211, end: 20100104
  33. REMERON [Suspect]
     Active Substance: MIRTAZAPINE
     Indication: BIPOLAR DISORDER
     Route: 048
     Dates: start: 20100305, end: 20100423
  34. DOGMATYL [Suspect]
     Active Substance: SULPIRIDE
     Indication: BIPOLAR DISORDER
     Route: 048
     Dates: start: 20070921, end: 20081106
  35. TRYPTANOL [Suspect]
     Active Substance: AMITRIPTYLINE
     Indication: BIPOLAR DISORDER
     Dosage: 50 MG, ADMINISTRATION FREQUENCY: TWICE TO THRICE DAILY
     Route: 048
     Dates: start: 20070803, end: 20070920
  36. TOLEDOMIN [Suspect]
     Active Substance: MILNACIPRAN HYDROCHLORIDE
     Indication: BIPOLAR DISORDER
     Route: 048
     Dates: start: 20081107, end: 20081211
  37. ROHYPNOL [Concomitant]
     Active Substance: FLUNITRAZEPAM
     Route: 048
     Dates: end: 20110128
  38. RHYTHMY [Concomitant]
     Active Substance: RILMAZAFONE HYDROCHLORIDE
     Route: 048
     Dates: start: 20071130, end: 20100603
  39. ARTANE D [Concomitant]
     Route: 048
     Dates: start: 20100611
  40. DOGMATYL [Suspect]
     Active Substance: SULPIRIDE
     Indication: BIPOLAR DISORDER
     Route: 048
     Dates: start: 20081212, end: 20100416
  41. TOLEDOMIN [Suspect]
     Active Substance: MILNACIPRAN HYDROCHLORIDE
     Indication: BIPOLAR DISORDER
     Route: 048
     Dates: start: 20071102, end: 20071129
  42. PYRETHIA [Suspect]
     Active Substance: PROMETHAZINE HYDROCHLORIDE
     Indication: BIPOLAR DISORDER
     Route: 048
     Dates: start: 20080328, end: 20091113
  43. HALCION [Concomitant]
     Active Substance: TRIAZOLAM
     Route: 048
     Dates: end: 20110128
  44. BETAMAC [Concomitant]
     Active Substance: SULPIRIDE
     Route: 048
     Dates: start: 20100319, end: 20100415
  45. MILNACIPRAN HYDROCHLORIDE. [Concomitant]
     Active Substance: MILNACIPRAN HYDROCHLORIDE
     Route: 048
     Dates: start: 20100319, end: 20100415
  46. DEPAS [Concomitant]
     Active Substance: ETIZOLAM
     Route: 048
     Dates: start: 20100305, end: 20101012

REACTIONS (10)
  - Suicidal ideation [Recovered/Resolved]
  - Malaise [Recovered/Resolved]
  - Off label use [Unknown]
  - Tardive dyskinesia [Not Recovered/Not Resolved]
  - Blood lactate dehydrogenase increased [Unknown]
  - Agitation [Recovered/Resolved]
  - Stress fracture [Unknown]
  - Weight decreased [Recovering/Resolving]
  - Dystonia [Recovering/Resolving]
  - Blood triglycerides increased [Unknown]

NARRATIVE: CASE EVENT DATE: 20081212
